FAERS Safety Report 5837197-2 (Version None)
Quarter: 2008Q3

REPORT INFORMATION
  Report Type: 
  Country: None (occurrence: None)
  Receive Date: 20080807
  Receipt Date: 20080729
  Transmission Date: 20090109
  Serious: Yes (Death)
  Sender: FDA-Public Use
  Company Number: FI-WYE-H05285308

PATIENT
  Sex: Female

DRUGS (12)
  1. SOMAC [Suspect]
     Route: 048
     Dates: start: 20080325, end: 20080508
  2. CARDACE [Suspect]
     Indication: HYPERTENSION
     Route: 048
     Dates: start: 20070510, end: 20080508
  3. ZINACEF [Suspect]
     Indication: PNEUMONIA
     Route: 042
     Dates: start: 20080502, end: 20080506
  4. EMCONCOR [Concomitant]
     Dosage: UNKNOWN
     Route: 048
     Dates: start: 20070522
  5. MAREVAN [Concomitant]
     Dosage: UNKNOWN
  6. KALINORM [Concomitant]
     Dosage: UNKNOWN
     Route: 048
     Dates: start: 20080506
  7. DIGOXIN [Concomitant]
     Dosage: UNKNOWN
     Route: 048
     Dates: start: 20040910
  8. FURESIS [Concomitant]
     Dosage: UNKNOWN
     Route: 048
     Dates: start: 20070516
  9. ACETYLSALICYLIC ACID SRT [Concomitant]
     Dosage: UNKNOWN
     Route: 048
     Dates: start: 20080101
  10. PLAVIX [Concomitant]
     Dosage: UNKNOWN
  11. ROCEPHIN [Suspect]
     Indication: PNEUMONIA
     Route: 042
     Dates: start: 20080506, end: 20080508
  12. ISOSORBIDE MONONITRATE [Concomitant]
     Dosage: UNKNOWN
     Route: 048
     Dates: start: 20040708

REACTIONS (1)
  - PANCYTOPENIA [None]
